FAERS Safety Report 9148467 (Version 1)
Quarter: 2013Q1

REPORT INFORMATION
  Report Type: Spontaneous
  Country: CA (occurrence: CA)
  Receive Date: 20130308
  Receipt Date: 20130308
  Transmission Date: 20140127
  Serious: Yes (Other)
  Sender: FDA-Public Use
  Company Number: PHHY2013CA015161

PATIENT
  Age: 83 Year
  Sex: Male

DRUGS (3)
  1. ACLASTA [Suspect]
     Indication: OSTEOPOROSIS
     Dosage: 5 MG, UNK
     Route: 042
     Dates: start: 20120123
  2. ACLASTA [Suspect]
     Dosage: 5 MG, UNK
     Route: 042
     Dates: start: 20130305
  3. PRIMIDONE [Concomitant]

REACTIONS (4)
  - Fall [Recovered/Resolved with Sequelae]
  - Upper limb fracture [Recovered/Resolved with Sequelae]
  - Blood creatine decreased [Unknown]
  - Hyperlipidaemia [Unknown]
